FAERS Safety Report 9156080 (Version 2)
Quarter: 2013Q1

REPORT INFORMATION
  Report Type: Spontaneous
  Country: DE (occurrence: DE)
  Receive Date: 20130311
  Receipt Date: 20130321
  Transmission Date: 20140127
  Serious: Yes (Hospitalization, Other)
  Sender: FDA-Public Use
  Company Number: DE-009507513-1302DEU007588

PATIENT
  Sex: Female

DRUGS (1)
  1. NANDROLONE DECANOATE [Suspect]
     Indication: HYPOTENSION
     Dosage: 6 INJECTIONS IN 2 WEEKS.
     Route: 030
     Dates: start: 19871207, end: 19871218

REACTIONS (40)
  - Adverse event [Unknown]
  - Menstruation irregular [Unknown]
  - General symptom [Unknown]
  - Pain [Not Recovered/Not Resolved]
  - Overdose [Unknown]
  - Nausea [Unknown]
  - Cardiac disorder [Unknown]
  - Presyncope [Unknown]
  - Adverse event [Unknown]
  - Decreased appetite [Unknown]
  - Weight decreased [Recovered/Resolved]
  - Libido increased [Unknown]
  - Amenorrhoea [Recovered/Resolved]
  - Weight increased [Unknown]
  - Tongue disorder [Unknown]
  - Burning sensation mucosal [Unknown]
  - Dyspepsia [Unknown]
  - Adverse event [Unknown]
  - Body temperature fluctuation [Unknown]
  - Benign ovarian tumour [Unknown]
  - Drug intolerance [Unknown]
  - Bronchial disorder [Unknown]
  - Paranasal sinus discomfort [Unknown]
  - Bacterial infection [Unknown]
  - Cow^s milk intolerance [Unknown]
  - Musculoskeletal pain [Unknown]
  - Headache [Unknown]
  - Abdominal distension [Unknown]
  - Gastrointestinal disorder [Unknown]
  - Rash pruritic [Unknown]
  - Poor quality sleep [Unknown]
  - Pneumonia [Unknown]
  - Bone disorder [Unknown]
  - Bone pain [Unknown]
  - Glossodynia [Unknown]
  - Blood pressure increased [Unknown]
  - Heart rate decreased [Unknown]
  - Hysterosalpingo-oophorectomy [Unknown]
  - Uterine polyp [Unknown]
  - Glucose tolerance impaired [Unknown]
